FAERS Safety Report 5717271-1 (Version None)
Quarter: 2008Q2

REPORT INFORMATION
  Report Type: 
  Country: None (occurrence: None)
  Receive Date: 20080424
  Receipt Date: 20080416
  Transmission Date: 20081010
  Serious: Yes (Death, Hospitalization, Other)
  Sender: FDA-Public Use
  Company Number: PHHY2008JP04887

PATIENT

DRUGS (7)
  1. ZOMETA [Suspect]
     Indication: METASTASES TO BONE
     Dosage: 4 MG
     Route: 042
     Dates: start: 20080125, end: 20080215
  2. ZOMETA [Suspect]
     Route: 042
     Dates: start: 20080215, end: 20080215
  3. ZYPREXA [Concomitant]
     Dosage: 5 MG
     Route: 048
     Dates: start: 20080214
  4. LANDSEN [Concomitant]
     Dosage: 0.25 MG
     Route: 048
     Dates: start: 20080215
  5. ESTRACYT  /SCH/ [Concomitant]
     Indication: PROSTATE CANCER
     Dosage: 2 DF
     Route: 048
     Dates: start: 20070903
  6. OXYCONTIN [Concomitant]
     Indication: ANALGESIA
     Dosage: 10 MG
     Route: 048
     Dates: start: 20080127
  7. OPSO DAINIPPON [Concomitant]
     Indication: PAIN
     Dosage: 5 MG
     Route: 048
     Dates: start: 20080218

REACTIONS (18)
  - ASPARTATE AMINOTRANSFERASE INCREASED [None]
  - BLOOD ALKALINE PHOSPHATASE INCREASED [None]
  - BLOOD CHLORIDE DECREASED [None]
  - BLOOD CREATININE ABNORMAL [None]
  - BLOOD LACTATE DEHYDROGENASE INCREASED [None]
  - BLOOD POTASSIUM ABNORMAL [None]
  - BLOOD SODIUM DECREASED [None]
  - BLOOD UREA INCREASED [None]
  - HAEMATOCRIT DECREASED [None]
  - HAEMOGLOBIN DECREASED [None]
  - HYPOCALCAEMIA [None]
  - MALAISE [None]
  - MALIGNANT NEOPLASM PROGRESSION [None]
  - MEAN CELL HAEMOGLOBIN CONCENTRATION [None]
  - MEAN CELL VOLUME ABNORMAL [None]
  - PLATELET COUNT DECREASED [None]
  - RED BLOOD CELL COUNT INCREASED [None]
  - RESPIRATORY FAILURE [None]
